FAERS Safety Report 18419397 (Version 1)
Quarter: 2020Q4

REPORT INFORMATION
  Report Type: Spontaneous
  Country: FR (occurrence: FR)
  Receive Date: 20201023
  Receipt Date: 20201023
  Transmission Date: 20210114
  Serious: Yes (Hospitalization)
  Sender: FDA-Public Use
  Company Number: FR-TEVA-2020-FR-1840326

PATIENT
  Age: 68 Year
  Sex: Male
  Weight: 70 kg

DRUGS (5)
  1. LANZOR [Concomitant]
     Active Substance: LANSOPRAZOLE
     Route: 048
     Dates: start: 20200805, end: 20200810
  2. INEXIUM [Concomitant]
     Active Substance: ESOMEPRAZOLE
     Route: 048
     Dates: start: 20200630, end: 20200804
  3. VANCOMYCINE [Suspect]
     Active Substance: VANCOMYCIN
     Indication: MENINGITIS STAPHYLOCOCCAL
     Route: 042
     Dates: start: 20200707, end: 20200726
  4. AMOXICILLINE TRIHYDRATEE [Concomitant]
     Active Substance: AMOXICILLIN
     Route: 042
     Dates: start: 20200626, end: 20200701
  5. CEFTRIAXONE SODIQUE [Suspect]
     Active Substance: CEFTRIAXONE SODIUM
     Indication: MENINGITIS STAPHYLOCOCCAL
     Route: 042
     Dates: start: 20200707, end: 20200726

REACTIONS (1)
  - Drug reaction with eosinophilia and systemic symptoms [Recovering/Resolving]

NARRATIVE: CASE EVENT DATE: 20200807
